FAERS Safety Report 17284313 (Version 5)
Quarter: 2021Q4

REPORT INFORMATION
  Report Type: Report from Study
  Country: US (occurrence: US)
  Receive Date: 20200117
  Receipt Date: 20211101
  Transmission Date: 20220303
  Serious: Yes (Other)
  Sender: FDA-Public Use
  Company Number: None

PATIENT
  Age: 38 Year
  Sex: Female

DRUGS (2)
  1. GILENYA [Suspect]
     Active Substance: FINGOLIMOD HYDROCHLORIDE
     Indication: Multiple sclerosis
     Dosage: 0.5 MG, QD
     Route: 048
  2. GILENYA [Suspect]
     Active Substance: FINGOLIMOD HYDROCHLORIDE
     Indication: Relapsing-remitting multiple sclerosis

REACTIONS (7)
  - Multiple sclerosis pseudo relapse [Unknown]
  - Drug ineffective [Unknown]
  - Paraesthesia [Unknown]
  - Tremor [Unknown]
  - Peripheral coldness [Unknown]
  - Liver function test increased [Unknown]
  - Ephelides [Unknown]

NARRATIVE: CASE EVENT DATE: 20210401
